FAERS Safety Report 12981451 (Version 2)
Quarter: 2016Q4

REPORT INFORMATION
  Report Type: Spontaneous
  Country: IT (occurrence: IT)
  Receive Date: 20161129
  Receipt Date: 20161227
  Transmission Date: 20170207
  Serious: Yes (Other)
  Sender: FDA-Public Use
  Company Number: IT-ACCORD-044656

PATIENT
  Age: 62 Year
  Sex: Female
  Weight: 80 kg

DRUGS (4)
  1. OXALIPLATIN. [Suspect]
     Active Substance: OXALIPLATIN
     Indication: COLON CANCER METASTATIC
     Dosage: ALSO RECEIVED VIA INTRAVENOUS BOLUS ROUTE.??RECEIVED FROM 27-JUN-2016.
     Route: 042
     Dates: start: 20160726
  2. AVASTIN [Concomitant]
     Active Substance: BEVACIZUMAB
     Indication: RECTAL CANCER
     Dosage: STRENGTH: 400 MG
     Route: 042
     Dates: start: 20160726
  3. IRINOTECAN [Suspect]
     Active Substance: IRINOTECAN
     Indication: COLON CANCER METASTATIC
     Dosage: RECEIVED 222 MG CYCLICAL.??222.8 MG CYCLICAL RECEIVED FROM 27-JUN-2016
     Route: 042
     Dates: start: 20160726
  4. FLUOROURACIL. [Suspect]
     Active Substance: FLUOROURACIL
     Indication: COLON CANCER METASTATIC
     Dosage: RECEIVED FROM 27-JUN-2016
     Route: 041
     Dates: start: 20160726

REACTIONS (6)
  - Asthenia [Recovered/Resolved]
  - Nausea [Recovered/Resolved]
  - Neutropenia [Recovered/Resolved]
  - Dysaesthesia [Recovered/Resolved]
  - Diarrhoea [Recovered/Resolved]
  - Paraesthesia [Recovered/Resolved]

NARRATIVE: CASE EVENT DATE: 20160920
